FAERS Safety Report 9025419 (Version 1)
Quarter: 2013Q1

REPORT INFORMATION
  Report Type: Spontaneous
  Country: SE (occurrence: SE)
  Receive Date: 20130122
  Receipt Date: 20130122
  Transmission Date: 20140127
  Serious: Yes (Other)
  Sender: FDA-Public Use
  Company Number: SE-ASTRAZENECA-2012SE79657

PATIENT
  Age: 26699 Day
  Sex: Female

DRUGS (1)
  1. MARCAIN SPINAL [Suspect]
     Indication: VARICOSE VEIN OPERATION
     Route: 037
     Dates: start: 20110104, end: 20110104

REACTIONS (1)
  - Cauda equina syndrome [Unknown]
